FAERS Safety Report 25267992 (Version 1)
Quarter: 2025Q2

REPORT INFORMATION
  Report Type: Spontaneous
  Country: US (occurrence: US)
  Receive Date: 20250505
  Receipt Date: 20250505
  Transmission Date: 20250716
  Serious: No
  Sender: CSL BEHRING
  Company Number: US-BEH-2025203384

PATIENT
  Sex: Female

DRUGS (3)
  1. HIZENTRA [Suspect]
     Active Substance: HUMAN IMMUNOGLOBULIN G
     Indication: Immunodeficiency common variable
     Dosage: 2 G, BIW (HIZENTRA 20% PFS (2GM TOTAL))
     Route: 058
     Dates: start: 201808
  2. HIZENTRA [Suspect]
     Active Substance: HUMAN IMMUNOGLOBULIN G
     Dosage: 1 G, BIW (HIZENTRA 20% PFS (1GM TOTAL))
     Route: 058
     Dates: start: 201808
  3. HYRIMOZ [Concomitant]
     Active Substance: ADALIMUMAB-ADAZ

REACTIONS (10)
  - Decreased appetite [Unknown]
  - Dyspnoea [Unknown]
  - Peripheral swelling [Unknown]
  - Peripheral swelling [Unknown]
  - Joint swelling [Unknown]
  - Pain [Unknown]
  - Pruritus [Unknown]
  - Headache [Unknown]
  - Pyrexia [Unknown]
  - Swelling [Unknown]
